FAERS Safety Report 5875474-X (Version None)
Quarter: 2008Q3

REPORT INFORMATION
  Report Type: 
  Country: None (occurrence: None)
  Receive Date: 20080909
  Receipt Date: 20080902
  Transmission Date: 20090109
  Serious: Yes (Life-Threatening)
  Sender: FDA-Public Use
  Company Number: AU-ROCHE-584097

PATIENT
  Sex: Male
  Weight: 75 kg

DRUGS (2)
  1. DIAZEPAM [Suspect]
     Indication: DRUG USE FOR UNKNOWN INDICATION
     Dosage: LONG TERM TREATMENT.
     Route: 065
  2. MIRTAZAPINE [Interacting]
     Indication: DEPRESSION
     Route: 048
     Dates: start: 20040202, end: 20080701

REACTIONS (4)
  - DIZZINESS [None]
  - HEAD INJURY [None]
  - LOSS OF CONSCIOUSNESS [None]
  - ROAD TRAFFIC ACCIDENT [None]
